FAERS Safety Report 12526491 (Version 2)
Quarter: 2016Q3

REPORT INFORMATION
  Report Type: Report from Study
  Country: BR (occurrence: BR)
  Receive Date: 20160705
  Receipt Date: 20160825
  Transmission Date: 20161109
  Serious: No
  Sender: FDA-Public Use
  Company Number: PHHY2016BR090288

PATIENT
  Sex: Female
  Weight: 37 kg

DRUGS (2)
  1. ILARIS [Suspect]
     Active Substance: CANAKINUMAB
     Indication: CHRONIC INFANTILE NEUROLOGICAL CUTANEOUS AND ARTICULAR SYNDROME
     Dosage: 150 MG, ONCE EVERY 8 WEEKS
     Route: 058
     Dates: start: 201107
  2. ILARIS [Suspect]
     Active Substance: CANAKINUMAB
     Indication: FUNGAL INFECTION
     Dosage: 150 MG, EVERY 4 WEEKS
     Route: 065

REACTIONS (4)
  - Asthenia [Unknown]
  - Inappropriate schedule of drug administration [Unknown]
  - Product use issue [Unknown]
  - Drug ineffective [Unknown]
